FAERS Safety Report 7218187-4 (Version None)
Quarter: 2011Q1

REPORT INFORMATION
  Report Type: 
  Country: None (occurrence: None)
  Receive Date: 20110110
  Receipt Date: 20110104
  Transmission Date: 20110831
  Serious: Yes (Other)
  Sender: FDA-Public Use
  Company Number: CH-PFIZER INC-2011001391

PATIENT
  Age: 65 Year
  Sex: Female

DRUGS (16)
  1. RANITIDINE [Concomitant]
     Dosage: 150 MG, 1X/DAY
     Dates: start: 20101125, end: 20101127
  2. METAMIZOLE [Concomitant]
     Dosage: 1 G, 3X/DAY
     Dates: start: 20101122
  3. ENOXAPARIN SODIUM [Concomitant]
     Dosage: 40 MG, 1X/DAY
     Route: 058
     Dates: start: 20101122
  4. LORAZEPAM [Concomitant]
     Dosage: 2.5 MG, 3X/DAY
     Route: 060
     Dates: start: 20101126, end: 20101201
  5. OMEPRAZOLE [Concomitant]
     Dosage: 40 MG, 1X/DAY
     Route: 042
     Dates: start: 20101121, end: 20101121
  6. METHYLPREDNISOLONE [Concomitant]
     Dosage: 125 MG, 1X/DAY
     Route: 042
     Dates: start: 20101124, end: 20101124
  7. LEVOTHYROXINE [Concomitant]
     Dosage: 75 UG, 1X/DAY
     Route: 048
     Dates: start: 20101127, end: 20101130
  8. PARACETAMOL [Concomitant]
     Dosage: 1 G, 4X/DAY
     Dates: start: 20101122
  9. OMEPRAZOLE [Concomitant]
     Dosage: 40 MG, 1X/DAY
     Route: 042
     Dates: start: 20101128, end: 20101207
  10. LEVOTHYROXINE [Concomitant]
     Dosage: 125 UG, 1X/DAY
     Route: 048
     Dates: start: 20101201
  11. TAZOBAC [Suspect]
     Indication: PROPHYLACTIC CHEMOTHERAPY
     Dosage: 4.5 G, 4X/DAY
     Route: 042
     Dates: start: 20101125, end: 20101207
  12. AMOXICILLIN + CLAVULANATE POTASSIUM [Suspect]
     Indication: PROPHYLACTIC CHEMOTHERAPY
     Dosage: 1.2 G, 3X/DAY
     Route: 042
     Dates: start: 20101122, end: 20101124
  13. LEVOTHYROXINE [Concomitant]
     Indication: POST PROCEDURAL HYPOTHYROIDISM
     Dosage: 125 UG, 1X/DAY
     Route: 048
     Dates: start: 20101101, end: 20101121
  14. ESOMEPRAZOLE [Concomitant]
     Dosage: 40 MG, 1X/DAY
     Route: 048
     Dates: start: 20101208
  15. METOCLOPRAMIDE [Concomitant]
     Dosage: 10 MG, 3X/DAY
     Route: 042
     Dates: start: 20101127, end: 20101201
  16. METHYLPREDNISOLONE [Concomitant]
     Dosage: 125 MG, 1X/DAY
     Route: 042
     Dates: start: 20101128, end: 20101128

REACTIONS (1)
  - ACUTE GENERALISED EXANTHEMATOUS PUSTULOSIS [None]
